FAERS Safety Report 5454220-8 (Version None)
Quarter: 2007Q3

REPORT INFORMATION
  Report Type: 
  Country: None (occurrence: None)
  Receive Date: 20070917
  Receipt Date: 20070905
  Transmission Date: 20080115
  Serious: Yes (Death)
  Sender: FDA-Public Use
  Company Number: AU-PFIZER INC-2007061517

PATIENT
  Sex: Male

DRUGS (2)
  1. SUTENT [Suspect]
     Indication: RENAL CANCER METASTATIC
     Dates: start: 20070402, end: 20070627
  2. MS CONTIN [Concomitant]
     Route: 048

REACTIONS (2)
  - DISEASE PROGRESSION [None]
  - RENAL CANCER METASTATIC [None]
